FAERS Safety Report 7617326-0 (Version None)
Quarter: 2011Q3

REPORT INFORMATION
  Report Type: 
  Country: None (occurrence: None)
  Receive Date: 20110718
  Receipt Date: 20110711
  Transmission Date: 20111222
  Serious: Yes (Hospitalization)
  Sender: FDA-Public Use
  Company Number: PHHY2011FR62639

PATIENT
  Sex: Male

DRUGS (7)
  1. PREDNISONE [Suspect]
     Dosage: UNK
  2. MODOPAR [Suspect]
     Dosage: 100 MG/25 MG
     Route: 048
  3. DIAMOX SRC [Concomitant]
     Dosage: 1 DF, BID
  4. L-DOPA [Concomitant]
     Dosage: UNK
  5. MODOPAR [Suspect]
     Dosage: 50 MG/12.5 MG
     Route: 048
  6. COMTAN [Suspect]
     Dosage: 1 DF SIX TIMES DAILY
     Route: 048
  7. POTASSIUM CHLORIDE [Concomitant]
     Dosage: 1 DF, TID
     Route: 048

REACTIONS (2)
  - HALLUCINATION, VISUAL [None]
  - PSYCHOMOTOR HYPERACTIVITY [None]
